FAERS Safety Report 24231473 (Version 6)
Quarter: 2025Q1

REPORT INFORMATION
  Report Type: Spontaneous
  Country: US (occurrence: US)
  Receive Date: 20240821
  Receipt Date: 20250220
  Transmission Date: 20250409
  Serious: No
  Sender: BRISTOL-MYERS SQUIBB COMPANY
  Company Number: US-BRISTOL-MYERS SQUIBB COMPANY-2024-131533

PATIENT
  Age: 85 Year
  Sex: Female

DRUGS (4)
  1. POMALYST [Suspect]
     Active Substance: POMALIDOMIDE
     Indication: Plasma cell myeloma
     Route: 048
  2. POMALYST [Suspect]
     Active Substance: POMALIDOMIDE
     Route: 048
  3. POMALYST [Suspect]
     Active Substance: POMALIDOMIDE
     Route: 048
  4. POMALYST [Suspect]
     Active Substance: POMALIDOMIDE
     Dosage: TAKE 1 WHOLE CAPSULE BY MOUTH WITH WATER W/ OR W/O FOOD AT THE SAME TIME  EVERY OTHER DAY ON DAYS 1-
     Route: 048

REACTIONS (7)
  - Fatigue [Not Recovered/Not Resolved]
  - Nausea [Unknown]
  - Gastrointestinal disorder [Unknown]
  - Laboratory test abnormal [Recovering/Resolving]
  - Drug intolerance [Unknown]
  - Constipation [Not Recovered/Not Resolved]
  - Off label use [Unknown]

NARRATIVE: CASE EVENT DATE: 20240801
